FAERS Safety Report 24305712 (Version 3)
Quarter: 2024Q4

REPORT INFORMATION
  Report Type: Spontaneous
  Country: US (occurrence: US)
  Receive Date: 20240911
  Receipt Date: 20241029
  Transmission Date: 20250115
  Serious: Yes (Life-Threatening, Hospitalization, Other)
  Sender: ALEXION PHARMACEUTICALS
  Company Number: US-AstraZeneca-CH-00701604A

PATIENT
  Age: 17 Year
  Weight: 83.2 kg

DRUGS (20)
  1. ULTOMIRIS [Suspect]
     Active Substance: RAVULIZUMAB-CWVZ
     Indication: Thrombotic microangiopathy
     Dosage: 3300 UNK (EVERY TWO MONTHS)
  2. ULTOMIRIS [Suspect]
     Active Substance: RAVULIZUMAB-CWVZ
     Indication: C3 glomerulopathy
     Dosage: 3300 UNK (EVERY TWO MONTHS)
  3. ULTOMIRIS [Suspect]
     Active Substance: RAVULIZUMAB-CWVZ
     Dosage: 3300 UNK (EVERY TWO MONTHS)
  4. ULTOMIRIS [Suspect]
     Active Substance: RAVULIZUMAB-CWVZ
     Dosage: 3300 UNK (EVERY TWO MONTHS)
  5. SOLIRIS [Suspect]
     Active Substance: ECULIZUMAB
     Dosage: UNK
     Route: 065
  6. SOLIRIS [Suspect]
     Active Substance: ECULIZUMAB
     Dosage: UNK
  7. SOLIRIS [Suspect]
     Active Substance: ECULIZUMAB
     Dosage: UNK
     Route: 065
  8. SOLIRIS [Suspect]
     Active Substance: ECULIZUMAB
     Dosage: UNK
  9. SOMATROPIN [Concomitant]
     Active Substance: SOMATROPIN
     Indication: Product used for unknown indication
     Dosage: 3.6 MILLIGRAM, QW (EVERY SEVEN DAYS)
  10. SOMATROPIN [Concomitant]
     Active Substance: SOMATROPIN
     Dosage: 3.6 MILLIGRAM, QW (EVERY SEVEN DAYS)
  11. SOMATROPIN [Concomitant]
     Active Substance: SOMATROPIN
     Dosage: 3.6 MILLIGRAM, QW (EVERY SEVEN DAYS)
  12. SOMATROPIN [Concomitant]
     Active Substance: SOMATROPIN
     Dosage: 3.6 MILLIGRAM, QW (EVERY SEVEN DAYS)
  13. MYCOPHENOLATE MOFETIL [Concomitant]
     Active Substance: MYCOPHENOLATE MOFETIL
     Indication: Product used for unknown indication
     Dosage: 3 DOSAGE FORM, BID
  14. MYCOPHENOLATE MOFETIL [Concomitant]
     Active Substance: MYCOPHENOLATE MOFETIL
     Dosage: 3 DOSAGE FORM, BID
  15. MYCOPHENOLATE MOFETIL [Concomitant]
     Active Substance: MYCOPHENOLATE MOFETIL
     Dosage: 3 DOSAGE FORM, BID
  16. MYCOPHENOLATE MOFETIL [Concomitant]
     Active Substance: MYCOPHENOLATE MOFETIL
     Dosage: 3 DOSAGE FORM, BID
  17. ONDANSETRON [Concomitant]
     Active Substance: ONDANSETRON
     Indication: Nausea
     Dosage: 1 DOSAGE FORM, Q8H AS NEEDED
  18. ONDANSETRON [Concomitant]
     Active Substance: ONDANSETRON
     Indication: Vomiting
     Dosage: 1 DOSAGE FORM, Q8H AS NEEDED
  19. ONDANSETRON [Concomitant]
     Active Substance: ONDANSETRON
     Dosage: 1 DOSAGE FORM, Q8H AS NEEDED
  20. ONDANSETRON [Concomitant]
     Active Substance: ONDANSETRON
     Dosage: 1 DOSAGE FORM, Q8H AS NEEDED

REACTIONS (2)
  - Meningococcal infection [Recovered/Resolved]
  - Off label use [Not Recovered/Not Resolved]
